FAERS Safety Report 24244974 (Version 1)
Quarter: 2024Q3

REPORT INFORMATION
  Report Type: Spontaneous
  Country: US (occurrence: US)
  Receive Date: 20240823
  Receipt Date: 20240823
  Transmission Date: 20241016
  Serious: Yes (Other)
  Sender: DOMPE FARMACEUTICI
  Company Number: US-FARMAPROD-202408-2911

PATIENT
  Age: 65 Year
  Sex: Male

DRUGS (29)
  1. OXERVATE [Suspect]
     Active Substance: CENEGERMIN-BKBJ
     Indication: Neurotrophic keratopathy
     Route: 047
     Dates: start: 20240810
  2. OXERVATE [Suspect]
     Active Substance: CENEGERMIN-BKBJ
     Indication: Hypoaesthesia eye
  3. CETIRIZINE HYDROCHLORIDE [Concomitant]
     Active Substance: CETIRIZINE HYDROCHLORIDE
  4. SYSTANE GEL [Concomitant]
     Dosage: (GRAM)
  5. PRILOSEC OTC [Concomitant]
     Active Substance: OMEPRAZOLE MAGNESIUM
  6. IRON\VITAMINS [Concomitant]
     Active Substance: IRON\VITAMINS
  7. ASPIRIN [Concomitant]
     Active Substance: ASPIRIN
  8. MAGNESIUM [Concomitant]
     Active Substance: MAGNESIUM
  9. ACETAMINOPHEN [Concomitant]
     Active Substance: ACETAMINOPHEN
  10. VALSARTAN [Concomitant]
     Active Substance: VALSARTAN
  11. NASONEX [Concomitant]
     Active Substance: MOMETASONE FUROATE
     Dosage: 24 HOURS ALLERGY
  12. JARDIANCE [Concomitant]
     Active Substance: EMPAGLIFLOZIN
  13. HUMALOG [Concomitant]
     Active Substance: INSULIN LISPRO
     Dosage: VIAL
  14. CYCLOSPORINE [Concomitant]
     Active Substance: CYCLOSPORINE
  15. ZOLPIDEM TARTRATE [Concomitant]
     Active Substance: ZOLPIDEM TARTRATE
  16. VITAMIN D3 [Concomitant]
     Active Substance: CHOLECALCIFEROL
  17. TRAMADOL HCL [Concomitant]
     Active Substance: TRAMADOL HYDROCHLORIDE
  18. TIMOLOL MALEATE [Concomitant]
     Active Substance: TIMOLOL MALEATE
  19. SIMVASTATIN [Concomitant]
     Active Substance: SIMVASTATIN
  20. PIOGLITAZONE [Concomitant]
     Active Substance: PIOGLITAZONE
  21. PANTOPRAZOLE SODIUM [Concomitant]
     Active Substance: PANTOPRAZOLE SODIUM
  22. METFORMIN [Concomitant]
     Active Substance: METFORMIN HYDROCHLORIDE
     Dosage: EXTENDED RELEASE GASTRIC RETENTION
  23. HYOSCYAMINE SULFATE [Concomitant]
     Active Substance: HYOSCYAMINE SULFATE
     Dosage: EXTENDED RELEASE
  24. FUROSEMIDE [Concomitant]
     Active Substance: FUROSEMIDE
  25. CARVEDILOL [Concomitant]
     Active Substance: CARVEDILOL
  26. BUPROPION [Concomitant]
     Active Substance: BUPROPION
     Dosage: 24 HOURS
  27. AMLODIPINE BESYLATE [Concomitant]
     Active Substance: AMLODIPINE BESYLATE
     Dosage: 24 HOURS
  28. PREDNISOLONE [Concomitant]
     Active Substance: PREDNISOLONE
  29. KETOROLAC [Concomitant]
     Active Substance: KETOROLAC TROMETHAMINE

REACTIONS (2)
  - Surgery [Unknown]
  - Periorbital pain [Unknown]

NARRATIVE: CASE EVENT DATE: 20240810
